FAERS Safety Report 4313626-0 (Version None)
Quarter: 2004Q1

REPORT INFORMATION
  Report Type: 
  Country: None (occurrence: None)
  Receive Date: 20040305
  Receipt Date: 20040301
  Transmission Date: 20041129
  Serious: Yes (Death)
  Sender: FDA-Public Use
  Company Number: T04-USA-00862-01

PATIENT
  Age: 75 Year
  Sex: Female
  Weight: 168.6 kg

DRUGS (21)
  1. MEMANTINE HCL [Suspect]
     Indication: DEMENTIA ALZHEIMER'S TYPE
     Dosage: 20 MG QD PO
  2. MEMANTINE (OPEN LABEL, PHASE C) (MENANTINE) [Suspect]
     Indication: DEMENTIA ALZHEIMER'S TYPE
     Dosage: 20 MG QD PO
  3. MEMANTINE (OPEN LABEL, PHASE B) (MEMANTINE) [Suspect]
     Indication: DEMENTIA ALZHEIMER'S TYPE
     Dosage: 20 MG QD PO
     Dates: start: 20021216
  4. MENATNINE (DOUBLE BLIND, PHASE A ) (MEMANTINE) [Suspect]
     Indication: DEMENTIA ALZHEIMER'S TYPE
     Dosage: 2 TABLET BID PO
  5. RISPERIDONE [Concomitant]
  6. PSYLLIUM [Concomitant]
  7. MOMETASONE FUROATE [Concomitant]
  8. GARLIC [Concomitant]
  9. FEXOFENADINE HCL [Concomitant]
  10. ALLERGY SHOT [Concomitant]
  11. DOCUSATE SODIUM [Concomitant]
  12. VALDECOXIB [Concomitant]
  13. DEXAMETHASONE [Concomitant]
  14. GINKO (GINKO BILOBA) [Concomitant]
  15. LEVOTHYROXINE SODIUM [Concomitant]
  16. DONEPEZIL [Concomitant]
  17. ESTRADIOL [Concomitant]
  18. ASPIRIN [Concomitant]
  19. CALCIUM CITRATE [Concomitant]
  20. MULTI-VITAMINS [Concomitant]
  21. VITAMIN E [Concomitant]

REACTIONS (7)
  - CONVULSION [None]
  - DYSPNOEA [None]
  - HALLUCINATION [None]
  - HYPERSOMNIA [None]
  - MYOCARDIAL INFARCTION [None]
  - RESPIRATORY ARREST [None]
  - THROMBOSIS [None]
